FAERS Safety Report 6417941-6 (Version None)
Quarter: 2009Q4

REPORT INFORMATION
  Report Type: 
  Country: None (occurrence: None)
  Receive Date: 20091028
  Receipt Date: 20091022
  Transmission Date: 20100525
  Serious: Yes (Other)
  Sender: FDA-Public Use
  Company Number: CHPA2009US20195

PATIENT
  Sex: Female
  Weight: 61.224 kg

DRUGS (2)
  1. KERI SERUM (NCH) [Suspect]
     Indication: DRY SKIN
     Dosage: UNK, UNK
     Route: 061
     Dates: start: 20090901, end: 20090922
  2. KERI SERUM (NCH) [Suspect]
     Indication: SUNBURN

REACTIONS (8)
  - APPLICATION SITE BURN [None]
  - APPLICATION SITE ERYTHEMA [None]
  - APPLICATION SITE PRURITUS [None]
  - APPLICATION SITE RASH [None]
  - APPLICATION SITE SWELLING [None]
  - DERMATITIS ALLERGIC [None]
  - FEELING HOT [None]
  - INSOMNIA [None]
